FAERS Safety Report 26007906 (Version 1)
Quarter: 2025Q4

REPORT INFORMATION
  Report Type: Spontaneous
  Country: US (occurrence: None)
  Receive Date: 20251105
  Receipt Date: 20251105
  Transmission Date: 20260118
  Serious: No
  Sender: FDA-CTU
  Company Number: None

PATIENT
  Age: 64 Year
  Sex: Female
  Weight: 86.18 kg

DRUGS (2)
  1. GAMMAGARD S/D [Suspect]
     Active Substance: HUMAN IMMUNOGLOBULIN G
     Indication: Immunodeficiency common variable
     Dosage: 40 GM 4 WEEKS INTRAVENOUS ?
     Dates: start: 20251105
  2. GAMMAGARD S/D [Suspect]
     Active Substance: HUMAN IMMUNOGLOBULIN G
     Indication: Immunodeficiency common variable
     Dosage: 5 GM EVERY 4 WEEKS INTRAVENOUS?
     Route: 042
     Dates: start: 20251105

REACTIONS (5)
  - Chills [None]
  - Flushing [None]
  - Infusion related reaction [None]
  - Pain [None]
  - Incorrect drug administration rate [None]

NARRATIVE: CASE EVENT DATE: 20251105
